FAERS Safety Report 8296789-4 (Version None)
Quarter: 2012Q2

REPORT INFORMATION
  Report Type: 
  Country: None (occurrence: None)
  Receive Date: 20120419
  Receipt Date: 20120223
  Transmission Date: 20120825
  Serious: No
  Sender: FDA-Public Use
  Company Number: US-ASTRAZENECA-2010SE56795

PATIENT
  Age: 57 Year
  Sex: Female
  Weight: 90.7 kg

DRUGS (8)
  1. PRILOSEC OTC [Suspect]
     Indication: ABDOMINAL DISCOMFORT
     Route: 048
  2. DEPAKOTE [Concomitant]
  3. ZALAXOPINE [Concomitant]
  4. LOVASTATIN [Concomitant]
  5. PRILOSEC [Suspect]
     Route: 048
  6. SOMA [Concomitant]
  7. NEXIUM [Suspect]
     Dosage: ONCE A DAY
     Route: 048
  8. NEXIUM [Suspect]
     Route: 048

REACTIONS (9)
  - LARYNGITIS [None]
  - DRUG DOSE OMISSION [None]
  - ILL-DEFINED DISORDER [None]
  - GASTRIC DISORDER [None]
  - PNEUMONIA [None]
  - BRONCHITIS [None]
  - EATING DISORDER [None]
  - WRONG DRUG ADMINISTERED [None]
  - DRUG INEFFECTIVE [None]
